FAERS Safety Report 21902311 (Version 1)
Quarter: 2023Q1

REPORT INFORMATION
  Report Type: Spontaneous
  Country: US (occurrence: US)
  Receive Date: 20230124
  Receipt Date: 20230124
  Transmission Date: 20230418
  Serious: Yes (Other)
  Sender: FDA-Public Use
  Company Number: US-ALKEM LABORATORIES LIMITED-US-ALKEM-2022-12892

PATIENT
  Age: 67 Year
  Sex: Female

DRUGS (12)
  1. LACOSAMIDE [Suspect]
     Active Substance: LACOSAMIDE
     Indication: Seizure
     Dosage: 200 MILLIGRAM
     Route: 042
  2. LEVETIRACETAM [Concomitant]
     Active Substance: LEVETIRACETAM
     Indication: Seizure
     Dosage: 250 MILLIGRAM, BID
     Route: 042
  3. LEVETIRACETAM [Concomitant]
     Active Substance: LEVETIRACETAM
     Dosage: 500 MILLIGRAM, BID
     Route: 042
  4. LEVETIRACETAM [Concomitant]
     Active Substance: LEVETIRACETAM
     Dosage: 1000 MILLIGRAM, BID
     Route: 042
  5. LEVETIRACETAM [Concomitant]
     Active Substance: LEVETIRACETAM
     Dosage: 1500 MILLIGRAM, BID
     Route: 042
  6. LORAZEPAM [Concomitant]
     Active Substance: LORAZEPAM
     Indication: Seizure
     Dosage: 2 MILLIGRAM
     Route: 042
  7. PHENOBARBITAL [Concomitant]
     Active Substance: PHENOBARBITAL
     Indication: Seizure
     Dosage: 600 MILLIGRAM
     Route: 042
  8. PHENOBARBITAL [Concomitant]
     Active Substance: PHENOBARBITAL
     Dosage: 60 MILLIGRAM (EVERY 8 H)
     Route: 042
  9. PHENOBARBITAL [Concomitant]
     Active Substance: PHENOBARBITAL
     Dosage: 1200 MILLIGRAM (LOADING DOSE)
     Route: 042
  10. PHENOBARBITAL [Concomitant]
     Active Substance: PHENOBARBITAL
     Dosage: 100 MILLIGRAM (EVERY EIGHT HOURS)
     Route: 042
  11. PRIMIDONE [Concomitant]
     Active Substance: PRIMIDONE
     Indication: Seizure
     Dosage: 250 MILLIGRAM, QD
     Route: 065
  12. PRIMIDONE [Concomitant]
     Active Substance: PRIMIDONE
     Dosage: 300 MILLIGRAM, QD
     Route: 065

REACTIONS (1)
  - Atrial fibrillation [Recovered/Resolved]
